FAERS Safety Report 20220545 (Version 1)
Quarter: 2021Q4

REPORT INFORMATION
  Report Type: Report from Study
  Country: CO (occurrence: CO)
  Receive Date: 20211223
  Receipt Date: 20211223
  Transmission Date: 20220303
  Serious: Yes (Death, Hospitalization)
  Sender: FDA-Public Use
  Company Number: CO-JNJFOC-20211057686

PATIENT
  Age: 85 Year
  Sex: Male
  Weight: 61 kg

DRUGS (1)
  1. ERLEADA [Suspect]
     Active Substance: APALUTAMIDE
     Indication: Hormone-dependent prostate cancer
     Dosage: LATEST ADMINISTRATION WAS ON 26-AUG-2021.
     Route: 048
     Dates: start: 20210521

REACTIONS (4)
  - Death [Fatal]
  - Myocardial infarction [Recovering/Resolving]
  - Pneumonia fungal [Recovering/Resolving]
  - Depression [Recovering/Resolving]

NARRATIVE: CASE EVENT DATE: 20211020
